FAERS Safety Report 7943600-4 (Version None)
Quarter: 2011Q4

REPORT INFORMATION
  Report Type: 
  Country: None (occurrence: None)
  Receive Date: 20111128
  Receipt Date: 20111115
  Transmission Date: 20120403
  Serious: Yes (Hospitalization)
  Sender: FDA-Public Use
  Company Number: JP-JNJFOC-20111107716

PATIENT
  Age: 42 Year
  Sex: Male

DRUGS (4)
  1. INFLIXIMAB, RECOMBINANT [Suspect]
     Indication: CROHN'S DISEASE
     Route: 042
  2. PROMETHAZINE [Concomitant]
     Indication: PREMEDICATION
     Route: 030
  3. AZATHIOPRINE [Suspect]
     Indication: PRODUCT USED FOR UNKNOWN INDICATION
     Route: 065
  4. HYDROCORTISONE [Concomitant]
     Indication: PREMEDICATION
     Route: 042

REACTIONS (7)
  - JOINT SWELLING [None]
  - BLOOD IMMUNOGLOBULIN E INCREASED [None]
  - NAUSEA [None]
  - DRUG SPECIFIC ANTIBODY PRESENT [None]
  - FREQUENT BOWEL MOVEMENTS [None]
  - INFUSION RELATED REACTION [None]
  - ARTHRALGIA [None]
